FAERS Safety Report 18633716 (Version 2)
Quarter: 2020Q4

REPORT INFORMATION
  Report Type: Spontaneous
  Country: BR (occurrence: BR)
  Receive Date: 20201218
  Receipt Date: 20201225
  Transmission Date: 20210114
  Serious: Yes (Hospitalization, Other)
  Sender: FDA-Public Use
  Company Number: BR-GLAXOSMITHKLINE-BR2020AMR247446

PATIENT
  Sex: Female

DRUGS (1)
  1. CLINDOXYL [Suspect]
     Active Substance: BENZOYL PEROXIDE\CLINDAMYCIN PHOSPHATE
     Indication: ACNE
     Dosage: UNK, QD, 45 G

REACTIONS (10)
  - Hyperaemia [Unknown]
  - Social problem [Unknown]
  - Burning sensation [Unknown]
  - Sensitive skin [Unknown]
  - Hypersensitivity [Unknown]
  - Skin exfoliation [Unknown]
  - Facial pain [Unknown]
  - Swelling face [Unknown]
  - Rash [Unknown]
  - Ocular discomfort [Unknown]
